FAERS Safety Report 11211410 (Version 1)
Quarter: 2015Q2

REPORT INFORMATION
  Report Type: Spontaneous
  Country: GB (occurrence: GB)
  Receive Date: 20150623
  Receipt Date: 20150623
  Transmission Date: 20150821
  Serious: Yes (Other)
  Sender: FDA-Public Use
  Company Number: GB-JNJFOC-20150609104

PATIENT
  Age: 8 Month
  Sex: Female
  Weight: 9 kg

DRUGS (3)
  1. CALPOL [Concomitant]
     Active Substance: ACETAMINOPHEN
     Route: 065
  2. NUROFEN [Suspect]
     Active Substance: IBUPROFEN
     Indication: TEETHING
     Route: 065
  3. CALGEL (CETYLPYRIDINIUM\LIDOCAINE) [Suspect]
     Active Substance: CETYLPYRIDINIUM\LIDOCAINE
     Indication: TEETHING
     Dosage: ABOUT 5 MM
     Route: 065

REACTIONS (1)
  - Agitation [Recovered/Resolved]
